FAERS Safety Report 8475025-X (Version None)
Quarter: 2012Q2

REPORT INFORMATION
  Report Type: 
  Country: None (occurrence: None)
  Receive Date: 20120628
  Receipt Date: 20120614
  Transmission Date: 20120825
  Serious: Yes (Other)
  Sender: FDA-Public Use
  Company Number: AU-UCBSA-059889

PATIENT

DRUGS (1)
  1. KEPPRA [Suspect]

REACTIONS (1)
  - EXTRAPYRAMIDAL DISORDER [None]
